FAERS Safety Report 17170345 (Version 1)
Quarter: 2019Q4

REPORT INFORMATION
  Report Type: Spontaneous
  Country: SE (occurrence: SE)
  Receive Date: 20191218
  Receipt Date: 20191218
  Transmission Date: 20200122
  Serious: Yes (Hospitalization)
  Sender: FDA-Public Use
  Company Number: SE-PFIZER INC-2019540697

PATIENT
  Age: 23 Year
  Sex: Female

DRUGS (3)
  1. TEMESTA [LORAZEPAM] [Suspect]
     Active Substance: LORAZEPAM
     Dosage: 14 MG, UNK
     Route: 048
     Dates: start: 20180617, end: 20180617
  2. ZOPICLONE [Suspect]
     Active Substance: ZOPICLONE
     Dosage: 160 MG, UNK
     Route: 048
     Dates: start: 20180617, end: 20180617
  3. PROPAVAN [Suspect]
     Active Substance: PROPIOMAZINE
     Dosage: 1 G, UNK
     Route: 048
     Dates: start: 20180617, end: 20180617

REACTIONS (4)
  - Intentional self-injury [Unknown]
  - Hyperventilation [Unknown]
  - Intentional overdose [Unknown]
  - Tachycardia [Unknown]

NARRATIVE: CASE EVENT DATE: 20180617
